FAERS Safety Report 14683351 (Version 1)
Quarter: 2018Q1

REPORT INFORMATION
  Report Type: Spontaneous
  Country: US (occurrence: US)
  Receive Date: 20180327
  Receipt Date: 20180327
  Transmission Date: 20180509
  Serious: No
  Sender: FDA-Public Use
  Company Number: US-PFIZER INC-2018122728

PATIENT

DRUGS (4)
  1. LARTRUVO [Suspect]
     Active Substance: OLARATUMAB
     Dosage: UNK
     Dates: start: 20180124, end: 20180226
  2. ADRIAMYCIN [Suspect]
     Active Substance: DOXORUBICIN HYDROCHLORIDE
     Dosage: UNK
     Dates: end: 20180226
  3. ADRIAMYCIN [Suspect]
     Active Substance: DOXORUBICIN HYDROCHLORIDE
     Dosage: UNK (60 PER METERS SQUARED)
     Dates: start: 20180124
  4. ADRIAMYCIN [Suspect]
     Active Substance: DOXORUBICIN HYDROCHLORIDE
     Dosage: UNK (75 PER METERS SQUARED)
     Dates: end: 20180226

REACTIONS (1)
  - Neoplasm progression [Unknown]
